FAERS Safety Report 15448945 (Version 1)
Quarter: 2018Q3

REPORT INFORMATION
  Report Type: Spontaneous
  Country: US (occurrence: US)
  Receive Date: 20180926
  Receipt Date: 20180926
  Transmission Date: 20181010
  Serious: No
  Sender: FDA-Public Use
  Company Number: None

PATIENT
  Age: 62 Year
  Sex: Female

DRUGS (4)
  1. PROGESTERONE. [Concomitant]
     Active Substance: PROGESTERONE
  2. ESTRADIOL. [Concomitant]
     Active Substance: ESTRADIOL
  3. CYANOCOBALAMIN. [Concomitant]
     Active Substance: CYANOCOBALAMIN
  4. ARMOUR THYROID [Suspect]
     Active Substance: THYROID, PORCINE
     Route: 048

REACTIONS (3)
  - Insomnia [None]
  - Pyrexia [None]
  - Palpitations [None]

NARRATIVE: CASE EVENT DATE: 20180706
